FAERS Safety Report 17591118 (Version 4)
Quarter: 2021Q4

REPORT INFORMATION
  Report Type: Spontaneous
  Country: US (occurrence: US)
  Receive Date: 20200327
  Receipt Date: 20211223
  Transmission Date: 20220303
  Serious: Yes (Hospitalization, Other)
  Sender: FDA-Public Use
  Company Number: US-PFIZER INC-2020125901

PATIENT
  Age: 81 Year
  Sex: Female
  Weight: 65.8 kg

DRUGS (8)
  1. METHOTREXATE SODIUM [Suspect]
     Active Substance: METHOTREXATE SODIUM
     Indication: Rheumatoid arthritis
     Dosage: 25 MG, WEEKLY
     Route: 048
     Dates: end: 201903
  2. ACTEMRA [Concomitant]
     Active Substance: TOCILIZUMAB
     Indication: Rheumatoid arthritis
     Dosage: UNK
     Dates: start: 201804, end: 201902
  3. INFLUENZA VIRUS VACCINE [Concomitant]
     Active Substance: INFLUENZA VIRUS VACCINE
     Dosage: UNK
     Dates: start: 20171128, end: 20171128
  4. INFLUENZA VIRUS VACCINE [Concomitant]
     Active Substance: INFLUENZA VIRUS VACCINE
     Dosage: UNK
     Dates: start: 20181029, end: 20181029
  5. FLUZONE HIGH-DOSE NOS [Concomitant]
     Active Substance: INFLUENZA A VIRUS A/CALIFORNIA/7/2009 X-179A (H1N1) ANTIGEN (FORMALDEHYDE INACTIVATED)\INFLUENZA A V
     Dosage: 0.5 ML
     Route: 030
     Dates: start: 20181023, end: 20181023
  6. PREVNAR 13 [Concomitant]
     Active Substance: PNEUMOCOCCAL 13-VALENT CONJUGATE VACCINE
     Dosage: UNK
     Route: 030
     Dates: start: 20160407, end: 20160407
  7. SHINGRIX [Concomitant]
     Active Substance: RECOMBINANT VARICELLA ZOSTER VIRUS (VZV) GLYCOPROTEIN E
     Dosage: UNK
     Dates: start: 20180406, end: 20180406
  8. SHINGRIX [Concomitant]
     Active Substance: RECOMBINANT VARICELLA ZOSTER VIRUS (VZV) GLYCOPROTEIN E
     Dosage: UNK
     Dates: start: 20180815, end: 20180815

REACTIONS (8)
  - Acute respiratory failure [Recovered/Resolved]
  - Pulmonary toxicity [Unknown]
  - Drug hypersensitivity [Unknown]
  - Pneumonia [Recovered/Resolved]
  - Immunodeficiency [Unknown]
  - Dyspnoea [Unknown]
  - Hypoxia [Recovered/Resolved]
  - Toxicity to various agents [Unknown]

NARRATIVE: CASE EVENT DATE: 20190324
